FAERS Safety Report 9278371 (Version 2)
Quarter: 2013Q2

REPORT INFORMATION
  Report Type: Spontaneous
  Country: US (occurrence: None)
  Receive Date: 20130506
  Receipt Date: 20130506
  Transmission Date: 20140414
  Serious: Yes (Life-Threatening, Hospitalization)
  Sender: FDA-Public Use
  Company Number: None

PATIENT
  Age: 56 Year
  Sex: Female
  Weight: 113.4 kg

DRUGS (1)
  1. AMOXICILLIN/CLAVULANATE [Suspect]
     Dosage: 1TAB BID PO
     Route: 048
     Dates: start: 20130501, end: 20130501

REACTIONS (4)
  - Swollen tongue [None]
  - Lip swelling [None]
  - Circumoral oedema [None]
  - Aphasia [None]
